FAERS Safety Report 11695032 (Version 2)
Quarter: 2016Q1

REPORT INFORMATION
  Report Type: Spontaneous
  Country: IT (occurrence: IT)
  Receive Date: 20151103
  Receipt Date: 20160118
  Transmission Date: 20160525
  Serious: Yes (Congenital Anomaly)
  Sender: FDA-Public Use
  Company Number: IT-ABBVIE-15P-083-1490316-00

PATIENT

DRUGS (1)
  1. ADALIMUMAB [Suspect]
     Active Substance: ADALIMUMAB
     Indication: MATERNAL EXPOSURE TIMING UNSPECIFIED
     Route: 064

REACTIONS (6)
  - Cleft palate [Unknown]
  - Oesophageal motility disorder [Unknown]
  - Foetal exposure during pregnancy [Unknown]
  - Micrognathia [Unknown]
  - Glaucoma [Unknown]
  - Myopia [Unknown]
